FAERS Safety Report 4598277-5 (Version None)
Quarter: 2005Q1

REPORT INFORMATION
  Report Type: 
  Country: None (occurrence: None)
  Receive Date: 20050301
  Receipt Date: 20050301
  Transmission Date: 20050727
  Serious: Yes (Life-Threatening, Hospitalization)
  Sender: FDA-Public Use
  Company Number: None

PATIENT
  Age: 52 Year
  Sex: Male
  Weight: 90.7194 kg

DRUGS (11)
  1. DIVALPROEX SODIUM EXTENDED RELEASE [Suspect]
     Indication: BIPOLAR II DISORDER
     Dosage: 1500 MG PO QHS
     Route: 048
     Dates: start: 19980101, end: 20041124
  2. DIAZEPAM [Concomitant]
  3. NYSTATIN [Concomitant]
  4. BISACODYL [Concomitant]
  5. DOCUSSATE [Concomitant]
  6. FLEETS ENEMA [Concomitant]
  7. CHLORAL HYDRATE [Concomitant]
  8. PROCHLORPERAZINE [Concomitant]
  9. DIPHENHYDRAMINE HCL [Concomitant]
  10. ATENOLOL [Concomitant]
  11. CEFAZOLIN [Concomitant]

REACTIONS (2)
  - ORAL INTAKE REDUCED [None]
  - PANCREATITIS [None]
